FAERS Safety Report 10618544 (Version 1)
Quarter: 2014Q4

REPORT INFORMATION
  Report Type: Spontaneous
  Country: US (occurrence: None)
  Receive Date: 20141125
  Receipt Date: 20141125
  Transmission Date: 20150529
  Serious: Yes (Death, Other)
  Sender: FDA-Public Use
  Company Number: 2014SA156644

PATIENT
  Sex: Female

DRUGS (1)
  1. GOLD BOND EXTRA STRENGTH POWDER [Suspect]
     Active Substance: MENTHOL\ZINC OXIDE

REACTIONS (2)
  - Ovarian cancer [None]
  - Multiple injuries [None]
